FAERS Safety Report 8983031 (Version 1)
Quarter: 2012Q4

REPORT INFORMATION
  Report Type: 
  Country: DE (occurrence: DE)
  Receive Date: 20121221
  Receipt Date: 20121221
  Transmission Date: 20130627
  Serious: Yes (Other)
  Sender: FDA-Public Use
  Company Number: DE-B.I. PHARMACEUTICALS,INC./RIDGEFIELD-2012-DE-02872DE

PATIENT
  Age: 63 Year
  Sex: Female

DRUGS (2)
  1. PRADAXA [Suspect]
     Indication: ATRIAL FIBRILLATION
     Dates: start: 20110819, end: 20121018
  2. PRADAXA [Suspect]
     Indication: THROMBOSIS

REACTIONS (6)
  - Oedema peripheral [Unknown]
  - Blister [Unknown]
  - Induration [Unknown]
  - Skin erosion [Unknown]
  - Ulcer [Unknown]
  - Nausea [Unknown]
